FAERS Safety Report 4601592-X (Version None)
Quarter: 2005Q1

REPORT INFORMATION
  Report Type: 
  Country: None (occurrence: None)
  Receive Date: 20050131
  Receipt Date: 20041101
  Transmission Date: 20050727
  Serious: No
  Sender: FDA-Public Use
  Company Number: 200418437US

PATIENT
  Age: 40 Year
  Sex: Female

DRUGS (2)
  1. KETEK [Suspect]
     Indication: RESPIRATORY TRACT INFECTION
     Dosage: 800 MG ONCE
     Dates: start: 20041020, end: 20041020
  2. ORAL CONTRACEPTIVE NOS [Concomitant]

REACTIONS (1)
  - VISION BLURRED [None]
